FAERS Safety Report 17482314 (Version 2)
Quarter: 2020Q1

REPORT INFORMATION
  Report Type: Spontaneous
  Country: FR (occurrence: FR)
  Receive Date: 20200302
  Receipt Date: 20200304
  Transmission Date: 20200409
  Serious: Yes (Hospitalization)
  Sender: FDA-Public Use
  Company Number: FR-MYLANLABS-2020M1021769

PATIENT
  Age: 63 Year
  Sex: Male
  Weight: 77 kg

DRUGS (3)
  1. FLUOROURACILE ACCORD [Suspect]
     Active Substance: FLUOROURACIL
     Indication: HER-2 POSITIVE GASTRIC CANCER
     Dosage: SUR 120H
     Route: 042
     Dates: start: 20191126, end: 20191130
  2. HERZUMA [Suspect]
     Active Substance: TRASTUZUMAB-PKRB
     Indication: HER-2 POSITIVE GASTRIC CANCER
     Dosage: 640 MILLIGRAM, CYCLE
     Route: 042
     Dates: start: 20191126, end: 20191126
  3. CISPLATIN MYLAN [Suspect]
     Active Substance: CISPLATIN
     Indication: HER-2 POSITIVE GASTRIC CANCER
     Dosage: 154 MILLIGRAM, CYCLE
     Route: 042
     Dates: start: 20191126, end: 20191126

REACTIONS (3)
  - Mucosal inflammation [Recovered/Resolved]
  - Neutropenia [Recovered/Resolved]
  - Dihydropyrimidine dehydrogenase deficiency [Not Recovered/Not Resolved]

NARRATIVE: CASE EVENT DATE: 20191213
